FAERS Safety Report 8790283 (Version 1)
Quarter: 2012Q4

REPORT INFORMATION
  Report Type: 
  Country: US (occurrence: US)
  Receive Date: 20120917
  Receipt Date: 20120917
  Transmission Date: 20130627
  Serious: Yes (Hospitalization)
  Sender: FDA-Public Use
  Company Number: US-BAYER-2012-096116

PATIENT
  Age: 45 Year
  Sex: Female
  Weight: 85.71 kg

DRUGS (11)
  1. GIANVI [Suspect]
  2. LISINOPRIL [Concomitant]
     Dosage: 40 mg, QD
     Dates: start: 20100115, end: 20110105
  3. FAMOTIDINE [Concomitant]
     Dosage: 20 mg, UNK
  4. AZITHROMYCIN [Concomitant]
     Dosage: 250 mg, UNK
  5. PROAIR HFA [Concomitant]
     Dosage: 90 ?g, UNK
     Route: 045
  6. LORATADINE [Concomitant]
     Dosage: 10 mg, QD
  7. NAPROSYN [Concomitant]
     Dosage: 500 mg, BID
  8. PRINIVIL [Concomitant]
  9. FERRITIN [Concomitant]
  10. PRILOSEC [Concomitant]
  11. LOPRESSOR [Concomitant]

REACTIONS (2)
  - Pulmonary embolism [None]
  - Deep vein thrombosis [None]
